FAERS Safety Report 8384083-2 (Version None)
Quarter: 2012Q2

REPORT INFORMATION
  Report Type: 
  Country: None (occurrence: None)
  Receive Date: 20120524
  Receipt Date: 20120521
  Transmission Date: 20120825
  Serious: Yes (Life-Threatening)
  Sender: FDA-Public Use
  Company Number: PL-GLAXOSMITHKLINE-B0803182A

PATIENT
  Sex: Male
  Weight: 62 kg

DRUGS (7)
  1. SODIUM CHLORIDE 0.9% [Concomitant]
     Indication: PROPHYLAXIS
     Dosage: 500ML TWICE PER DAY
     Route: 042
     Dates: start: 20120508
  2. IFOSFAMIDE [Suspect]
     Indication: DIFFUSE LARGE B-CELL LYMPHOMA
     Dosage: 1600MG CYCLIC
     Route: 042
     Dates: start: 20120516
  3. MESNA [Suspect]
     Indication: DIFFUSE LARGE B-CELL LYMPHOMA
     Dosage: 128MG CYCLIC
     Route: 042
     Dates: start: 20120516
  4. CYTOSAR-U [Suspect]
     Indication: DIFFUSE LARGE B-CELL LYMPHOMA
     Dosage: 1600MG CYCLIC
     Route: 042
     Dates: start: 20120516
  5. 5% GLUCOSE [Concomitant]
     Indication: PROPHYLAXIS
     Dosage: 500ML TWICE PER DAY
     Route: 042
     Dates: start: 20120516
  6. ETOPOSIDE [Suspect]
     Indication: DIFFUSE LARGE B-CELL LYMPHOMA
     Dosage: 96MG CYCLIC
     Route: 042
     Dates: start: 20120516
  7. OFATUMUMAB [Suspect]
     Indication: DIFFUSE LARGE B-CELL LYMPHOMA
     Dosage: 1000MG CYCLIC
     Route: 042
     Dates: start: 20120516

REACTIONS (2)
  - ALTERED STATE OF CONSCIOUSNESS [None]
  - CIRCULATORY COLLAPSE [None]
